FAERS Safety Report 14571919 (Version 2)
Quarter: 2018Q2

REPORT INFORMATION
  Report Type: Spontaneous
  Country: SE (occurrence: SE)
  Receive Date: 20180226
  Receipt Date: 20180423
  Transmission Date: 20180711
  Serious: Yes (Other)
  Sender: FDA-Public Use
  Company Number: PHHY2018SE027864

PATIENT
  Sex: Female

DRUGS (1)
  1. GABAPENTIN 1A FARMA [Suspect]
     Active Substance: GABAPENTIN
     Indication: PRODUCT USED FOR UNKNOWN INDICATION
     Dosage: UNK
     Route: 065

REACTIONS (9)
  - Pyrexia [Unknown]
  - Fatigue [Unknown]
  - Weight decreased [Unknown]
  - Injury [Unknown]
  - Vision blurred [Unknown]
  - Infection susceptibility increased [Unknown]
  - Musculoskeletal pain [Unknown]
  - Nausea [Unknown]
  - Cough [Unknown]
